FAERS Safety Report 10436625 (Version 1)
Quarter: 2014Q3

REPORT INFORMATION
  Report Type: Spontaneous
  Country: US (occurrence: US)
  Receive Date: 20140908
  Receipt Date: 20140908
  Transmission Date: 20150326
  Serious: No
  Sender: FDA-Public Use
  Company Number: US-BRISTOL-MYERS SQUIBB COMPANY-20228409

PATIENT
  Age: 57 Year
  Sex: Male
  Weight: 79.36 kg

DRUGS (4)
  1. TRAZODONE HYDROCHLORIDE. [Concomitant]
     Active Substance: TRAZODONE HYDROCHLORIDE
  2. ABILIFY [Suspect]
     Active Substance: ARIPIPRAZOLE
     Indication: ANGER
  3. AMPHETAMINE SULFATE [Concomitant]
     Active Substance: AMPHETAMINE SULFATE
     Indication: DEPRESSION
     Dosage: NIGHT HE TOOK 5 MG?TOOK UP TO 15 MG?1-3 MG PIECES OF A 10 MG TABLET.
  4. CLONAZEPAM. [Concomitant]
     Active Substance: CLONAZEPAM

REACTIONS (3)
  - Wrong technique in drug usage process [Unknown]
  - Asthenia [Unknown]
  - Off label use [Unknown]
